FAERS Safety Report 11096655 (Version 2)
Quarter: 2015Q2

REPORT INFORMATION
  Report Type: Spontaneous
  Country: GB (occurrence: GB)
  Receive Date: 20150507
  Receipt Date: 20150522
  Transmission Date: 20150821
  Serious: Yes (Hospitalization)
  Sender: FDA-Public Use
  Company Number: GB-BAYER-2015-183379

PATIENT
  Age: 30 Year
  Sex: Female

DRUGS (1)
  1. ACETYLSALICYLIC ACID (} 100 MG) [Suspect]
     Active Substance: ASPIRIN
     Dosage: 300 MG, QD

REACTIONS (2)
  - Benign neoplasm of spinal cord [None]
  - Spinal cord haemorrhage [None]
